FAERS Safety Report 10579726 (Version 2)
Quarter: 2014Q4

REPORT INFORMATION
  Report Type: Spontaneous
  Country: US (occurrence: US)
  Receive Date: 20141112
  Receipt Date: 20141119
  Transmission Date: 20150529
  Serious: Yes (Other)
  Sender: FDA-Public Use
  Company Number: US-ASTRAZENECA-2014SE85405

PATIENT
  Age: 47 Year
  Sex: Female

DRUGS (6)
  1. METFORMIN [Concomitant]
     Active Substance: METFORMIN HYDROCHLORIDE
     Dosage: BEGUN TWO YEARS BEFORE ADMISSION
     Route: 065
  2. ATENOLOL. [Concomitant]
     Active Substance: ATENOLOL
     Dosage: BEGUN TWO YEARS BEFORE ADMISSION
     Route: 065
  3. PIOGLITAZONE [Concomitant]
     Active Substance: PIOGLITAZONE
     Dosage: BEGUN TWO YEARS BEFORE ADMISSION
     Route: 065
  4. DETEMIR [Concomitant]
     Dosage: BEGUN TWO YEARS BEFORE ADMISSION
     Route: 065
  5. FUROSEMIDE. [Concomitant]
     Active Substance: FUROSEMIDE
     Dosage: BEGUN TWO YEARS BEFORE ADMISSION
     Route: 065
  6. LISINOPRIL. [Suspect]
     Active Substance: LISINOPRIL
     Dosage: BEGUN TWO YEARS BEFORE ADMISSION
     Route: 048

REACTIONS (1)
  - Hepatitis cholestatic [Recovered/Resolved]
